FAERS Safety Report 6725679-0 (Version None)
Quarter: 2010Q2

REPORT INFORMATION
  Report Type: 
  Country: None (occurrence: None)
  Receive Date: 20100514
  Receipt Date: 20100504
  Transmission Date: 20101027
  Serious: Yes (Hospitalization)
  Sender: FDA-Public Use
  Company Number: SE-SANOFI-AVENTIS-2010SA025810

PATIENT
  Age: 43 Year
  Sex: Female

DRUGS (11)
  1. ARAVA [Suspect]
     Indication: RHEUMATOID ARTHRITIS
     Route: 042
     Dates: start: 20060301, end: 20070801
  2. HUMIRA [Suspect]
     Dates: start: 20060301, end: 20091201
  3. ETANERCEPT [Suspect]
     Dates: start: 20050301, end: 20060301
  4. METHOTREXATE [Suspect]
     Route: 048
     Dates: start: 20070901, end: 20091201
  5. OMEPRAZOLE [Concomitant]
  6. FOLACIN [Concomitant]
  7. ACETAMINOPHEN [Concomitant]
  8. PREDNISOLONE [Concomitant]
  9. VOLTAREN [Concomitant]
  10. ORUDIS [Concomitant]
  11. CALCICHEW-D3 [Concomitant]

REACTIONS (1)
  - GENITAL NEOPLASM MALIGNANT FEMALE [None]
